FAERS Safety Report 9231182 (Version 6)
Quarter: 2013Q3

REPORT INFORMATION
  Report Type: Spontaneous
  Country: IE (occurrence: IE)
  Receive Date: 20130415
  Receipt Date: 20130701
  Transmission Date: 20140515
  Serious: Yes (Hospitalization, Other)
  Sender: FDA-Public Use
  Company Number: IE-BIOMARINAP-IE-2013-100629

PATIENT
  Age: 39 Year
  Sex: Male
  Weight: 41 kg

DRUGS (5)
  1. ALDURAZYME [Suspect]
     Indication: MUCOPOLYSACCHARIDOSIS I
     Dosage: 5000 IU, UNK
     Route: 042
  2. WARFARIN [Concomitant]
     Indication: PRODUCT USED FOR UNKNOWN INDICATION
     Dosage: UNK
     Dates: end: 20130409
  3. DIGOXIN [Concomitant]
     Indication: PRODUCT USED FOR UNKNOWN INDICATION
     Dosage: UNK
  4. FUROSEMIDE [Concomitant]
     Indication: PRODUCT USED FOR UNKNOWN INDICATION
     Dosage: UNK
  5. WARFARIN SODIUM [Concomitant]
     Indication: PRODUCT USED FOR UNKNOWN INDICATION
     Dosage: UNK
     Dates: end: 20130409

REACTIONS (11)
  - Intestinal obstruction [Unknown]
  - Intestinal perforation [Unknown]
  - Haemorrhage [Unknown]
  - Pneumonia [Unknown]
  - Constipation [Unknown]
  - Vomiting [Unknown]
  - Bronchospasm [Unknown]
  - Oedema peripheral [Unknown]
  - Hypoalbuminaemia [Unknown]
  - Tracheostomy [Not Recovered/Not Resolved]
  - Weight decreased [Not Recovered/Not Resolved]
